FAERS Safety Report 7893215-1 (Version None)
Quarter: 2011Q4

REPORT INFORMATION
  Report Type: 
  Country: None (occurrence: None)
  Receive Date: 20111104
  Receipt Date: 20111101
  Transmission Date: 20120403
  Serious: Yes (Other)
  Sender: FDA-Public Use
  Company Number: SE-PFIZER INC-2010018850

PATIENT
  Age: 80 Year
  Sex: Male

DRUGS (10)
  1. LYRICA [Suspect]
     Dosage: 175 MG DAILY (100 MG IN THE MORNING AND 75 MG IN THE EVENING)
     Route: 048
     Dates: end: 20100401
  2. LYRICA [Suspect]
     Dosage: 50 MG, 2X/DAY
     Route: 048
  3. BUPROPION HYDROCHLORIDE [Suspect]
     Dosage: UNK
     Dates: start: 20090601, end: 20100401
  4. LYRICA [Suspect]
     Dosage: UNK
     Route: 048
     Dates: start: 20100401, end: 20101201
  5. NOZINAN [Suspect]
     Dosage: 5 MG, 1X/DAY
     Dates: end: 20101001
  6. ASPIRIN [Concomitant]
     Dosage: UNK
  7. LYRICA [Suspect]
     Dosage: 25 MG, 2X/DAY
     Route: 048
     Dates: start: 20110617
  8. PERSANTIN [Concomitant]
     Dosage: UNK
  9. LYRICA [Suspect]
     Dosage: 75 MG, 2X/DAY
     Route: 048
  10. LYRICA [Suspect]
     Indication: NEURALGIA
     Dosage: 25 MG, 2X/DAY
     Route: 048
     Dates: start: 20080702

REACTIONS (19)
  - INCORRECT DOSE ADMINISTERED [None]
  - MEMORY IMPAIRMENT [None]
  - MUSCULAR WEAKNESS [None]
  - WHEEZING [None]
  - GAIT DISTURBANCE [None]
  - APATHY [None]
  - DRUG PRESCRIBING ERROR [None]
  - DEPRESSION [None]
  - DYSARTHRIA [None]
  - GRIP STRENGTH DECREASED [None]
  - DIPLOPIA [None]
  - FEELING COLD [None]
  - COORDINATION ABNORMAL [None]
  - BALANCE DISORDER [None]
  - APHASIA [None]
  - INCONTINENCE [None]
  - ERECTILE DYSFUNCTION [None]
  - DECREASED APPETITE [None]
  - MEDICATION ERROR [None]
